FAERS Safety Report 9394281 (Version 2)
Quarter: 2013Q3

REPORT INFORMATION
  Report Type: Spontaneous
  Country: US (occurrence: US)
  Receive Date: 20130711
  Receipt Date: 20130717
  Transmission Date: 20140515
  Serious: Yes (Death, Other)
  Sender: FDA-Public Use
  Company Number: US-009507513-1307USA001029

PATIENT
  Age: 61 Year
  Sex: Male

DRUGS (1)
  1. TEMODAR [Suspect]
     Indication: NEOPLASM MALIGNANT
     Dosage: 180 MG, ONCE DAILY FOR 42 DAYS DURING RADIATION
     Route: 048
     Dates: start: 2013

REACTIONS (1)
  - Neoplasm malignant [Fatal]
